FAERS Safety Report 12967100 (Version 1)
Quarter: 2016Q4

REPORT INFORMATION
  Report Type: Spontaneous
  Country: US (occurrence: US)
  Receive Date: 20161123
  Receipt Date: 20161123
  Transmission Date: 20170207
  Serious: No
  Sender: FDA-Public Use
  Company Number: US-ASTRAZENECA-2016SF22024

PATIENT
  Sex: Female
  Weight: 74.8 kg

DRUGS (4)
  1. ALBUTEROL. [Concomitant]
     Active Substance: ALBUTEROL
     Indication: DYSPNOEA
     Dosage: 1 PUFF, AS REQUIRED
     Route: 055
  2. BLOOD PRESSURE MEDICATION [Concomitant]
     Active Substance: UNSPECIFIED INGREDIENT
     Dosage: ONCE A DAY
  3. SYNTHROID [Concomitant]
     Active Substance: LEVOTHYROXINE SODIUM
     Indication: THYROID DISORDER
     Dosage: GENERIC, 0.88 UG, DAILY
  4. SYMBICORT [Suspect]
     Active Substance: BUDESONIDE\FORMOTEROL FUMARATE DIHYDRATE
     Indication: ASTHMA
     Dosage: 160/4.5 MCG TWO PUFFS TWICE A DAY
     Route: 055

REACTIONS (3)
  - Wheezing [Unknown]
  - Dyspnoea [Unknown]
  - Cough [Unknown]
